FAERS Safety Report 23458369 (Version 1)
Quarter: 2024Q1

REPORT INFORMATION
  Report Type: Spontaneous
  Country: US (occurrence: US)
  Receive Date: 20240130
  Receipt Date: 20240130
  Transmission Date: 20240410
  Serious: Yes (Hospitalization, Other)
  Sender: FDA-Public Use
  Company Number: US-009507513-2401USA014946

PATIENT
  Sex: Female

DRUGS (3)
  1. KEYTRUDA [Suspect]
     Active Substance: PEMBROLIZUMAB
     Indication: Lymphoma
     Dosage: UNK
     Route: 042
     Dates: start: 2023
  2. TAXOL [Suspect]
     Active Substance: PACLITAXEL
     Indication: Lymphoma
     Dosage: UNK
     Dates: start: 2023
  3. CARBOPLATIN [Suspect]
     Active Substance: CARBOPLATIN
     Indication: Lymphoma
     Dosage: UNK
     Dates: start: 2023, end: 2023

REACTIONS (1)
  - Drug-induced liver injury [Unknown]
